FAERS Safety Report 9815384 (Version 3)
Quarter: 2014Q2

REPORT INFORMATION
  Report Type: Report from Study
  Country: BR (occurrence: BR)
  Receive Date: 20140114
  Receipt Date: 20140422
  Transmission Date: 20141212
  Serious: Yes (Other)
  Sender: FDA-Public Use
  Company Number: BR-ROCHE-1332253

PATIENT
  Sex: Male
  Weight: 80 kg

DRUGS (4)
  1. ACTEMRA [Suspect]
     Indication: RHEUMATOID ARTHRITIS
     Route: 042
     Dates: start: 20100801
  2. ACTEMRA [Suspect]
     Dosage: MOST RECENT INFUSIONS RECEIVED ON 01/FEB/2014 AND 18/MAR/2014
     Route: 042
     Dates: start: 20131209
  3. ANGIPRESS (BRAZIL) [Concomitant]
     Route: 065
  4. PRAVASTATIN [Concomitant]
     Route: 065

REACTIONS (1)
  - Poor peripheral circulation [Recovered/Resolved]
